FAERS Safety Report 23482804 (Version 1)
Quarter: 2024Q1

REPORT INFORMATION
  Report Type: Spontaneous
  Country: CN (occurrence: CN)
  Receive Date: 20240205
  Receipt Date: 20240205
  Transmission Date: 20240410
  Serious: Yes (Other)
  Sender: FDA-Public Use
  Company Number: CN-009507513-2402CHN000409

PATIENT
  Age: 41 Year
  Sex: Female
  Weight: 64.2 kg

DRUGS (4)
  1. KEYTRUDA [Suspect]
     Active Substance: PEMBROLIZUMAB
     Indication: Hepatobiliary cancer
     Dosage: 200 MG, ONCE
     Route: 041
     Dates: start: 20240104, end: 20240104
  2. GEMCITABINE HYDROCHLORIDE [Suspect]
     Active Substance: GEMCITABINE HYDROCHLORIDE
     Indication: Hepatobiliary cancer
     Dosage: 1.4 G, ONCE
     Route: 041
     Dates: start: 20231109, end: 20231109
  3. GEMCITABINE HYDROCHLORIDE [Suspect]
     Active Substance: GEMCITABINE HYDROCHLORIDE
     Dosage: 1.4 G, ONCE
     Route: 041
     Dates: start: 20240104, end: 20240104
  4. PACLITAXEL [Suspect]
     Active Substance: PACLITAXEL
     Indication: Hepatobiliary cancer
     Dosage: 200 MG, ONCE
     Route: 041
     Dates: start: 20240104, end: 20240104

REACTIONS (5)
  - Liver injury [Recovering/Resolving]
  - Peripheral swelling [Recovering/Resolving]
  - Hypoaesthesia [Recovering/Resolving]
  - Anaemia [Recovering/Resolving]
  - Product use issue [Unknown]

NARRATIVE: CASE EVENT DATE: 20240104
